FAERS Safety Report 13781030 (Version 1)
Quarter: 2017Q3

REPORT INFORMATION
  Report Type: Spontaneous
  Country: US (occurrence: US)
  Receive Date: 20170722
  Receipt Date: 20170722
  Transmission Date: 20171127
  Serious: No
  Sender: FDA-Public Use
  Company Number: None

PATIENT
  Age: 19 Year
  Sex: Male
  Weight: 53.1 kg

DRUGS (7)
  1. ENALAPRIL [Concomitant]
     Active Substance: ENALAPRIL
  2. BABY ASPIRIN [Concomitant]
     Active Substance: ASPIRIN
  3. ZADITOR [Concomitant]
     Active Substance: KETOTIFEN FUMARATE
  4. FLUTICASONE. [Concomitant]
     Active Substance: FLUTICASONE
  5. LORATADINE. [Concomitant]
     Active Substance: LORATADINE
  6. GUMMY VITAMINS [Concomitant]
  7. STRATTERA [Suspect]
     Active Substance: ATOMOXETINE HYDROCHLORIDE
     Indication: ATTENTION DEFICIT/HYPERACTIVITY DISORDER
     Dosage: ?          OTHER STRENGTH:MG;QUANTITY:30 CAPSULE(S);?
     Route: 048

REACTIONS (1)
  - Hypoaesthesia [None]

NARRATIVE: CASE EVENT DATE: 20170721
